FAERS Safety Report 6369835-2 (Version None)
Quarter: 2009Q3

REPORT INFORMATION
  Report Type: 
  Country: None (occurrence: None)
  Receive Date: 20090923
  Receipt Date: 20070516
  Transmission Date: 20100115
  Serious: Yes (Other)
  Sender: FDA-Public Use
  Company Number: US-ASTRAZENECA-2006UW10816

PATIENT
  Age: 343 Month
  Sex: Male
  Weight: 96.6 kg

DRUGS (4)
  1. SEROQUEL [Suspect]
     Indication: MENTAL DISORDER
     Dosage: 200-1000 MG
     Route: 048
     Dates: start: 20050302
  2. GEODON [Concomitant]
  3. RISPERIDONE [Concomitant]
  4. ZYPREXA [Concomitant]
     Dates: start: 20030101, end: 20050101

REACTIONS (2)
  - DIABETES MELLITUS [None]
  - DIABETIC KETOACIDOSIS [None]
